FAERS Safety Report 5059531-6 (Version None)
Quarter: 2006Q3

REPORT INFORMATION
  Report Type: 
  Country: None (occurrence: None)
  Receive Date: 20060724
  Receipt Date: 20060616
  Transmission Date: 20061208
  Serious: Yes (Other)
  Sender: FDA-Public Use
  Company Number: PHNU2006DE02298

PATIENT
  Age: 56 Year
  Sex: Female

DRUGS (7)
  1. LEPONEX [Suspect]
     Indication: SCHIZOAFFECTIVE DISORDER
     Dosage: UP TO 150 MG/DAY
     Route: 048
     Dates: start: 20010101, end: 20060613
  2. LEPONEX [Suspect]
     Dosage: 25 MG/DAY
     Route: 048
     Dates: start: 20060705
  3. CYMBALTA [Suspect]
     Indication: SCHIZOAFFECTIVE DISORDER
     Dosage: 60 MG, QD
     Route: 048
     Dates: start: 20050801, end: 20060613
  4. ZOPICLON [Suspect]
     Indication: SCHIZOAFFECTIVE DISORDER
     Dosage: 7.5 MG, QD
     Route: 048
     Dates: start: 20030701
  5. BELOC ZOK [Concomitant]
     Dosage: 71.25 MG/DAY
     Route: 048
     Dates: start: 20050801
  6. ESIDRIX [Concomitant]
     Dosage: 25 MG, QD
     Route: 048
     Dates: start: 20060601
  7. DOMINAL ^DRESDEN^ [Concomitant]
     Indication: SCHIZOAFFECTIVE DISORDER
     Dosage: 80 MG/DAY
     Route: 048
     Dates: start: 20030701

REACTIONS (3)
  - CROHN'S DISEASE [None]
  - DELIRIUM [None]
  - DRUG LEVEL INCREASED [None]
